FAERS Safety Report 18206488 (Version 1)
Quarter: 2020Q3

REPORT INFORMATION
  Report Type: Spontaneous
  Country: FR (occurrence: FR)
  Receive Date: 20200828
  Receipt Date: 20200828
  Transmission Date: 20201103
  Serious: Yes (Congenital Anomaly)
  Sender: FDA-Public Use
  Company Number: FR-SUN PHARMACEUTICAL INDUSTRIES LTD-2020RR-259014

PATIENT
  Age: 1 Day
  Sex: Male
  Weight: 3.92 kg

DRUGS (3)
  1. OMEPRAZOLE. [Suspect]
     Active Substance: OMEPRAZOLE
     Indication: HYPEREMESIS GRAVIDARUM
     Dosage: ()
     Route: 064
  2. PRIMPERAN [Suspect]
     Active Substance: METOCLOPRAMIDE HYDROCHLORIDE
     Indication: HYPEREMESIS GRAVIDARUM
     Dosage: ()
     Route: 064
  3. ZOPHREN [Suspect]
     Active Substance: ONDANSETRON
     Indication: HYPEREMESIS GRAVIDARUM
     Dosage: ()
     Route: 064

REACTIONS (1)
  - Gastrointestinal malformation [Unknown]

NARRATIVE: CASE EVENT DATE: 2019
